FAERS Safety Report 5325545-1 (Version None)
Quarter: 2007Q2

REPORT INFORMATION
  Report Type: 
  Country: None (occurrence: None)
  Receive Date: 20070515
  Receipt Date: 20070503
  Transmission Date: 20071010
  Serious: Yes (Hospitalization, Other)
  Sender: FDA-Public Use
  Company Number: US-PFIZER INC-2006071725

PATIENT
  Sex: Male
  Weight: 79.4 kg

DRUGS (1)
  1. BEXTRA [Suspect]
     Indication: GOUT
     Dates: start: 20040629, end: 20041230

REACTIONS (1)
  - CEREBROVASCULAR ACCIDENT [None]
